FAERS Safety Report 8800105 (Version 2)
Quarter: 2013Q2

REPORT INFORMATION
  Report Type: Spontaneous
  Country: FR (occurrence: FR)
  Receive Date: 20120921
  Receipt Date: 20130405
  Transmission Date: 20140414
  Serious: Yes (Hospitalization)
  Sender: FDA-Public Use
  Company Number: FR-BRISTOL-MYERS SQUIBB COMPANY-16955262

PATIENT
  Age: 61 Year
  Sex: Male

DRUGS (3)
  1. GLUCOPHAGE [Suspect]
     Indication: TYPE 2 DIABETES MELLITUS
     Dosage: REINTRODUCED
     Route: 048
  2. KIVEXA [Suspect]
     Indication: HIV INFECTION
     Dosage: 1DF=600/300 MG?TABS?THERAPY RESTARTED
     Route: 048
  3. KALETRA [Suspect]
     Indication: HIV INFECTION
     Dosage: 200/50MG?TABS?THERAPY RESTARTED
     Route: 048

REACTIONS (10)
  - Renal failure acute [Recovered/Resolved]
  - Lactic acidosis [Recovered/Resolved]
  - Haemodialysis [None]
  - Pneumonia [None]
  - Hyponatraemia [None]
  - Inflammation [None]
  - White blood cell count increased [None]
  - Blood potassium decreased [None]
  - Treatment noncompliance [None]
  - Legionella test positive [None]
